FAERS Safety Report 5899520-2 (Version None)
Quarter: 2008Q3

REPORT INFORMATION
  Report Type: 
  Country: None (occurrence: None)
  Receive Date: 20080926
  Receipt Date: 20080915
  Transmission Date: 20090109
  Serious: Yes (Hospitalization)
  Sender: FDA-Public Use
  Company Number: GB-JNJFOC-20030603528

PATIENT
  Age: 44 Year
  Sex: Female
  Weight: 82 kg

DRUGS (11)
  1. REMICADE [Suspect]
     Route: 042
  2. REMICADE [Suspect]
     Route: 042
  3. REMICADE [Suspect]
     Indication: RHEUMATOID ARTHRITIS
     Route: 042
  4. METHOTREXATE [Concomitant]
  5. PREDNISOLONE [Concomitant]
  6. INDOMETHACIN [Concomitant]
  7. FOLIC ACID [Concomitant]
  8. FEMHRT [Concomitant]
  9. FORTICINE [Concomitant]
  10. NIPEDIPINE [Concomitant]
  11. HORMONE REPLACEMENT THERAPY [Concomitant]

REACTIONS (3)
  - DEAFNESS [None]
  - DEMYELINATION [None]
  - HYPOAESTHESIA [None]
